FAERS Safety Report 6203803-6 (Version None)
Quarter: 2009Q2

REPORT INFORMATION
  Report Type: 
  Country: None (occurrence: None)
  Receive Date: 20090527
  Receipt Date: 20090520
  Transmission Date: 20091009
  Serious: Yes (Hospitalization, Other)
  Sender: FDA-Public Use
  Company Number: PHHO2009BE00679

PATIENT
  Sex: Female

DRUGS (4)
  1. AMN107 AMN+CAP [Suspect]
     Indication: CHRONIC MYELOID LEUKAEMIA
     Dosage: 400 MG, BID
     Route: 048
     Dates: start: 20050804, end: 20090107
  2. MICARDIS [Concomitant]
     Indication: HYPERTENSION
  3. OMEPRAZOLE [Concomitant]
  4. MAGNESPASMYL [Concomitant]

REACTIONS (7)
  - ARTERIOSCLEROSIS [None]
  - CHEST PAIN [None]
  - CORONARY ARTERIAL STENT INSERTION [None]
  - CORONARY ARTERY OCCLUSION [None]
  - CORONARY ARTERY STENOSIS [None]
  - HYPERTENSION [None]
  - MYOCARDIAL INFARCTION [None]
